FAERS Safety Report 12298191 (Version 1)
Quarter: 2016Q2

REPORT INFORMATION
  Report Type: Spontaneous
  Country: US (occurrence: US)
  Receive Date: 20160423
  Receipt Date: 20160423
  Transmission Date: 20160815
  Serious: No
  Sender: FDA-Public Use
  Company Number: US-AMGEN-USASP2016051114

PATIENT
  Age: 70 Year
  Sex: Female

DRUGS (1)
  1. ENBREL [Suspect]
     Active Substance: ETANERCEPT
     Indication: PRODUCT USED FOR UNKNOWN INDICATION
     Dosage: UNK UNK, UNK
     Route: 065
     Dates: start: 20160420

REACTIONS (4)
  - Injection site pain [Unknown]
  - Underdose [Unknown]
  - Wrong technique in product usage process [Unknown]
  - Injection site extravasation [Unknown]

NARRATIVE: CASE EVENT DATE: 20160420
